FAERS Safety Report 18341797 (Version 11)
Quarter: 2021Q3

REPORT INFORMATION
  Report Type: Report from Study
  Country: CN (occurrence: CN)
  Receive Date: 20201005
  Receipt Date: 20210728
  Transmission Date: 20211014
  Serious: Yes (Death, Hospitalization)
  Sender: FDA-Public Use
  Company Number: CN-ROCHE-2687023

PATIENT
  Age: 50 Year
  Sex: Male
  Weight: 70 kg

DRUGS (33)
  1. BEVACIZUMAB. [Suspect]
     Active Substance: BEVACIZUMAB
     Dosage: DOSE LAST STUDY DRUG ADMIN PRIOR AE/SAE IS 1065 MG?DAY 1 OF EACH 21?DAY CYCLE?START DATE OF MOST REC
     Route: 042
     Dates: start: 20201030
  2. CARBOPLATIN. [Suspect]
     Active Substance: CARBOPLATIN
     Indication: NON-SMALL CELL LUNG CANCER
     Dosage: INITIAL TARGET AUC OF 6 MG/ML/MIN?MOST RECENT DOSE OF STUDY DRUG PRIOR TO AE AND SAE WAS 850 MG ON 0
     Route: 042
     Dates: start: 20200702
  3. GABAPENTIN. [Concomitant]
     Active Substance: GABAPENTIN
     Indication: ANALGESIC THERAPY
     Dates: start: 20200702, end: 20201117
  4. PALONOSETRON HYDROCHLORIDE. [Concomitant]
     Active Substance: PALONOSETRON HYDROCHLORIDE
     Indication: VOMITING
     Dates: start: 20200908, end: 20200908
  5. RECOMBINANT HUMAN GRANULOCYTE COLONY STIMULATING FACTOR [Concomitant]
     Active Substance: GRANULOCYTE COLONY-STIMULATING FACTOR NOS
     Dates: start: 20200910, end: 20200914
  6. RHUBARB. [Concomitant]
     Active Substance: RHUBARB
     Dates: start: 20200908, end: 20200908
  7. AMBROXOL HYDROCHLORIDE [Concomitant]
     Active Substance: AMBROXOL HYDROCHLORIDE
     Dates: start: 20200928, end: 20201006
  8. CELEBREX [Concomitant]
     Active Substance: CELECOXIB
     Indication: PAIN
     Dates: start: 20201030, end: 20201117
  9. CALCIUM CARBONATE;VITAMIN D3 [Concomitant]
     Indication: MINERAL SUPPLEMENTATION
     Dates: start: 20200703, end: 20201117
  10. PANTOPRAZOLE SODIUM. [Concomitant]
     Active Substance: PANTOPRAZOLE SODIUM
     Dates: start: 20200908, end: 20200908
  11. PANTOPRAZOLE SODIUM. [Concomitant]
     Active Substance: PANTOPRAZOLE SODIUM
     Dates: start: 20200928, end: 20201006
  12. RECOMBINANT HUMAN ERYTHROPOIETIN INJECTION (CHO CELL) [Concomitant]
     Indication: ANAEMIA
     Dates: start: 20200909, end: 20200909
  13. EMEND [Concomitant]
     Active Substance: APREPITANT
     Indication: NAUSEA
     Dates: start: 20200908, end: 20200910
  14. BEVACIZUMAB. [Suspect]
     Active Substance: BEVACIZUMAB
     Indication: NON-SMALL CELL LUNG CANCER
     Dosage: DOSE LAST STUDY DRUG ADMIN PRIOR AE/SAE IS 1065 MG?DAY 1 OF EACH 21?DAY CYCLE?START DATE OF MOST REC
     Route: 042
     Dates: start: 20200702
  15. PULMICORT RESPULES [Concomitant]
     Active Substance: BUDESONIDE
     Dates: start: 20200928, end: 20201010
  16. ACETYLCYSTEINE. [Concomitant]
     Active Substance: ACETYLCYSTEINE
     Dates: start: 20201010, end: 20201022
  17. PLACEBO [Suspect]
     Active Substance: UNSPECIFIED INGREDIENT
     Indication: NON-SMALL CELL LUNG CANCER
     Dosage: DOSE LAST PLACEBO STUDY DRUG ADMIN PRIOR SAE WAS ON 08/SEP/2020 ?ON DAY 1 OF EACH 21?DAY CYCLE UNTIL
     Route: 042
     Dates: start: 20200702
  18. ZOLEDRONIC ACID [Concomitant]
     Active Substance: ZOLEDRONIC ACID
     Dates: start: 20201030, end: 20201030
  19. ATROVENT [Concomitant]
     Active Substance: IPRATROPIUM BROMIDE
     Dates: start: 20200928, end: 20201010
  20. NEXIUM [Concomitant]
     Active Substance: ESOMEPRAZOLE MAGNESIUM
     Dates: start: 20201007, end: 20201117
  21. BICYCLOL [Concomitant]
     Active Substance: BICYCLOL
     Dates: start: 20201030, end: 20201111
  22. PEMETREXED. [Suspect]
     Active Substance: PEMETREXED
     Indication: NON-SMALL CELL LUNG CANCER
     Dosage: START DATE OF MOST RECENT DOSE OF STUDY DRUG PRIOR TO AE/SAE WAS 900 MG ON 08/SEP/2020
     Route: 042
     Dates: start: 20200702
  23. DEXAMETHASONE SODIUM PHOSPHATE. [Concomitant]
     Active Substance: DEXAMETHASONE SODIUM PHOSPHATE
     Route: 042
     Dates: start: 20200909, end: 20200909
  24. ZOLEDRONIC ACID [Concomitant]
     Active Substance: ZOLEDRONIC ACID
     Dates: start: 20200909, end: 20200909
  25. ONDANSETRON HYDROCHLORIDE. [Concomitant]
     Active Substance: ONDANSETRON HYDROCHLORIDE
     Indication: VOMITING
     Dates: start: 20200909, end: 20200915
  26. PARACETAMOL [Concomitant]
     Active Substance: ACETAMINOPHEN
     Indication: PYREXIA
     Dates: start: 20200901, end: 20200902
  27. OXYCONTIN [Concomitant]
     Active Substance: OXYCODONE HYDROCHLORIDE
     Indication: ANALGESIC THERAPY
     Dates: start: 20200630, end: 20201117
  28. RECOMBINANT HUMAN ERYTHROPOIETIN INJECTION (CHO CELL) [Concomitant]
     Dates: start: 20200924, end: 20201016
  29. IBUPROFEN. [Concomitant]
     Active Substance: IBUPROFEN
     Indication: PYREXIA
     Dates: start: 20200904, end: 20200904
  30. COMPOUND GLYCYRRHIZIN INJECTION [Concomitant]
     Active Substance: CYSTEINE\GLYCINE\GLYCYRRHIZIN
     Indication: HEPATIC FUNCTION ABNORMAL
     Dates: start: 20201030, end: 20201030
  31. FOLIC ACID. [Concomitant]
     Active Substance: FOLIC ACID
     Dates: start: 20200617, end: 20200617
  32. DEXAMETHASONE SODIUM PHOSPHATE. [Concomitant]
     Active Substance: DEXAMETHASONE SODIUM PHOSPHATE
     Route: 042
     Dates: start: 20200908, end: 20200908
  33. GLUTATHIONE REDUCED [Concomitant]
     Dates: start: 20201030, end: 20201030

REACTIONS (2)
  - Pneumonia [Not Recovered/Not Resolved]
  - Interstitial lung disease [Fatal]

NARRATIVE: CASE EVENT DATE: 20200927
